FAERS Safety Report 16659910 (Version 1)
Quarter: 2019Q3

REPORT INFORMATION
  Report Type: Spontaneous
  Country: FR (occurrence: FR)
  Receive Date: 20190802
  Receipt Date: 20190802
  Transmission Date: 20191004
  Serious: Yes (Other)
  Sender: FDA-Public Use
  Company Number: FR-TEVA-2019-FR-1086071

PATIENT
  Age: 62 Year
  Sex: Female
  Weight: 52 kg

DRUGS (2)
  1. RIFABUTINE [Suspect]
     Active Substance: RIFABUTIN
     Indication: LATENT TUBERCULOSIS
     Dosage: 300 MILLIGRAM DAILY;
     Route: 048
     Dates: start: 20190410, end: 20190421
  2. LEVOFLOXACINE [Suspect]
     Active Substance: LEVOFLOXACIN
     Indication: LATENT TUBERCULOSIS
     Dosage: 250 MILLIGRAM DAILY;
     Route: 048
     Dates: start: 20190410, end: 20190421

REACTIONS (1)
  - Neutropenia [Recovered/Resolved]

NARRATIVE: CASE EVENT DATE: 20190421
